FAERS Safety Report 4984367-1 (Version None)
Quarter: 2006Q2

REPORT INFORMATION
  Report Type: 
  Country: None (occurrence: None)
  Receive Date: 20060427
  Receipt Date: 20060420
  Transmission Date: 20061013
  Serious: Yes (Other)
  Sender: FDA-Public Use
  Company Number: 2006AC00764

PATIENT
  Sex: Female

DRUGS (1)
  1. EMLA [Suspect]
     Indication: ANAESTHESIA
     Route: 061

REACTIONS (2)
  - EYE IRRITATION [None]
  - INJURY CORNEAL [None]
